FAERS Safety Report 14117201 (Version 1)
Quarter: 2017Q4

REPORT INFORMATION
  Report Type: Spontaneous
  Country: US (occurrence: US)
  Receive Date: 20171023
  Receipt Date: 20171023
  Transmission Date: 20180321
  Serious: Yes (Death)
  Sender: FDA-Public Use
  Company Number: US-PURDUE PHARMA-USA-2017-0140923

PATIENT
  Sex: Male

DRUGS (3)
  1. OXYCODONE HYDROCHLORIDE (SIMILAR TO NDA 22-272) [Suspect]
     Active Substance: OXYCODONE HYDROCHLORIDE
     Indication: PULMONARY SARCOIDOSIS
     Dosage: 5 MG, UNK
     Route: 048
  2. OXYCONTIN [Suspect]
     Active Substance: OXYCODONE HYDROCHLORIDE
     Indication: PULMONARY SARCOIDOSIS
     Dosage: 10 MG, UNK
     Route: 048
  3. ALPRAZOLAM. [Suspect]
     Active Substance: ALPRAZOLAM
     Indication: PULMONARY SARCOIDOSIS
     Dosage: 2 MG, UNK
     Route: 065

REACTIONS (2)
  - Foaming at mouth [Not Recovered/Not Resolved]
  - Accidental overdose [Fatal]

NARRATIVE: CASE EVENT DATE: 20160820
